FAERS Safety Report 9990871 (Version 1)
Quarter: 2014Q1

REPORT INFORMATION
  Report Type: Spontaneous
  Country: US (occurrence: None)
  Receive Date: 20140307
  Receipt Date: 20140307
  Transmission Date: 20141002
  Serious: Yes (Hospitalization, Other)
  Sender: FDA-Public Use
  Company Number: None

PATIENT
  Age: 35 Year
  Sex: Female
  Weight: 56.25 kg

DRUGS (5)
  1. SIMVASTATIN [Suspect]
     Indication: HYPERLIPIDAEMIA
     Dosage: SIMVASTATIN 40MG TABLET PO 8:30
  2. ACETAMINOPHEN [Concomitant]
  3. BENZOTROPINE [Concomitant]
  4. DULOXETINE [Concomitant]
  5. OMEPRAZOLE [Concomitant]

REACTIONS (4)
  - Liver function test abnormal [None]
  - Blood alkaline phosphatase increased [None]
  - Aspartate aminotransferase increased [None]
  - Alanine aminotransferase increased [None]
